FAERS Safety Report 9514527 (Version 3)
Quarter: 2013Q4

REPORT INFORMATION
  Report Type: Report from Study
  Country: JP (occurrence: JP)
  Receive Date: 20130911
  Receipt Date: 20131011
  Transmission Date: 20140711
  Serious: Yes (Hospitalization)
  Sender: FDA-Public Use
  Company Number: JP-MERCK-1309JPN002446

PATIENT
  Age: 68 Year
  Sex: Male

DRUGS (11)
  1. RIBAVIRIN [Suspect]
     Indication: CHRONIC HEPATITIS C
     Dosage: 800 MG, QD
     Route: 048
     Dates: start: 20130513, end: 20130819
  2. DACLATASVIR [Suspect]
     Indication: CHRONIC HEPATITIS C
     Dosage: 60 MG, QD
     Route: 048
     Dates: start: 20130513, end: 20130804
  3. PEGINTERFERON LAMBDA-1A [Suspect]
     Indication: CHRONIC HEPATITIS C
     Dosage: 180 MICROGRAM, QD
     Route: 058
     Dates: start: 20130513, end: 20130812
  4. UNISIA [Concomitant]
  5. NORVASC [Concomitant]
  6. BRONUCK [Concomitant]
  7. CRAVIT [Concomitant]
  8. EURAX CREAM + LOTION [Concomitant]
     Dosage: UNK
     Dates: start: 20130610
  9. RINDERON VG [Concomitant]
     Dosage: UNK
     Dates: start: 20130815
  10. ATARAX P [Concomitant]
     Dosage: UNK
     Dates: start: 20130815
  11. XYZAL [Concomitant]

REACTIONS (1)
  - Liver disorder [Not Recovered/Not Resolved]
